FAERS Safety Report 16013947 (Version 1)
Quarter: 2019Q1

REPORT INFORMATION
  Report Type: Report from Study
  Country: US (occurrence: US)
  Receive Date: 20190227
  Receipt Date: 20190227
  Transmission Date: 20190418
  Serious: Yes (Other)
  Sender: FDA-Public Use
  Company Number: US-SA-2019SA052222

PATIENT
  Age: 69 Year
  Sex: Female

DRUGS (1)
  1. INSULIN GLARGINE [Suspect]
     Active Substance: INSULIN GLARGINE
     Indication: DIABETES MELLITUS
     Dosage: UNK
     Route: 058

REACTIONS (8)
  - Hypothyroidism [Unknown]
  - Basedow^s disease [Unknown]
  - Atrial fibrillation [Unknown]
  - Uterine cancer [Unknown]
  - Depression [Unknown]
  - Rhinitis [Unknown]
  - Cardiac assistance device user [Unknown]
  - Pulmonary hypertension [Unknown]
